FAERS Safety Report 20190468 (Version 1)
Quarter: 2021Q4

REPORT INFORMATION
  Report Type: Spontaneous
  Country: US (occurrence: US)
  Receive Date: 20211215
  Receipt Date: 20211215
  Transmission Date: 20220304
  Serious: Yes (Hospitalization)
  Sender: FDA-Public Use
  Company Number: US-ENDO PHARMACEUTICALS INC-2021-012646

PATIENT
  Sex: Male

DRUGS (6)
  1. XIAFLEX [Suspect]
     Active Substance: COLLAGENASE CLOSTRIDIUM HISTOLYTICUM
     Indication: Peyronie^s disease
     Dosage: 0.58 MG, UNKNOWN (CYCLE ONE, INJECTION TWO)
     Route: 065
     Dates: start: 2021
  2. XIAFLEX [Suspect]
     Active Substance: COLLAGENASE CLOSTRIDIUM HISTOLYTICUM
     Dosage: 0.58 MG, UNKNOWN (CYCLE ONE, INJECTION ONE)
     Route: 065
     Dates: start: 20210625
  3. XIAFLEX [Suspect]
     Active Substance: COLLAGENASE CLOSTRIDIUM HISTOLYTICUM
     Dosage: 0.58 MG, UNKNOWN (CYCLE TWO INJECTION ONE)
     Route: 065
     Dates: start: 2021
  4. XIAFLEX [Suspect]
     Active Substance: COLLAGENASE CLOSTRIDIUM HISTOLYTICUM
     Dosage: 0.58 MG, UNKNOWN (CYCLE TWO, INJECTION TWO)
     Route: 065
     Dates: start: 2021
  5. XIAFLEX [Suspect]
     Active Substance: COLLAGENASE CLOSTRIDIUM HISTOLYTICUM
     Dosage: 0.58 MG, UNKNOWN (CYCLE THREE, INJECTION ONE)
     Route: 065
     Dates: start: 2021
  6. XIAFLEX [Suspect]
     Active Substance: COLLAGENASE CLOSTRIDIUM HISTOLYTICUM
     Dosage: 0.58 MG, UNKNOWN (CYCLE THREE, INJECTION TWO)
     Route: 065
     Dates: start: 2021

REACTIONS (4)
  - Swelling [Unknown]
  - Swelling [Unknown]
  - Back pain [Unknown]
  - Contusion [Unknown]

NARRATIVE: CASE EVENT DATE: 20210101
